FAERS Safety Report 15947382 (Version 5)
Quarter: 2020Q1

REPORT INFORMATION
  Report Type: Spontaneous
  Country: US (occurrence: US)
  Receive Date: 20190211
  Receipt Date: 20200108
  Transmission Date: 20200409
  Serious: Yes (Other)
  Sender: FDA-Public Use
  Company Number: US-PFIZER INC-2019062688

PATIENT
  Age: 73 Year
  Sex: Female
  Weight: 63.95 kg

DRUGS (1)
  1. IBRANCE [Suspect]
     Active Substance: PALBOCICLIB
     Indication: BREAST CANCER FEMALE
     Dosage: 125 MG, CYCLIC (DAILY, 21 DAYS ON/7 DAYS OFF)
     Route: 048
     Dates: start: 20190124, end: 201912

REACTIONS (4)
  - Sluggishness [Unknown]
  - White blood cell count decreased [Unknown]
  - Epistaxis [Unknown]
  - Nausea [Unknown]

NARRATIVE: CASE EVENT DATE: 20190124
